FAERS Safety Report 23165962 (Version 1)
Quarter: 2023Q4

REPORT INFORMATION
  Report Type: Spontaneous
  Country: US (occurrence: None)
  Receive Date: 20231108
  Receipt Date: 20231108
  Transmission Date: 20240110
  Serious: Yes (Death)
  Sender: FDA-Public Use
  Company Number: None

PATIENT
  Age: 64 Year
  Sex: Female

DRUGS (1)
  1. CILTACABTAGENE AUTOLEUCEL [Suspect]
     Active Substance: CILTACABTAGENE AUTOLEUCEL

REACTIONS (11)
  - Cytokine release syndrome [None]
  - Dyspnoea [None]
  - Tachypnoea [None]
  - Neurotoxicity [None]
  - Confusional state [None]
  - Pancytopenia [None]
  - Haematotoxicity [None]
  - Enterococcal bacteraemia [None]
  - Aspergillus infection [None]
  - Cerebellar haemorrhage [None]
  - Brain oedema [None]
